FAERS Safety Report 20332826 (Version 1)
Quarter: 2022Q1

REPORT INFORMATION
  Report Type: Spontaneous
  Country: US (occurrence: None)
  Receive Date: 20220113
  Receipt Date: 20220113
  Transmission Date: 20220424
  Serious: No
  Sender: FDA-Public Use
  Company Number: None

PATIENT
  Age: 65 Year
  Sex: Female

DRUGS (1)
  1. REPATHA [Suspect]
     Active Substance: EVOLOCUMAB
     Indication: Blood cholesterol increased
     Route: 058

REACTIONS (5)
  - Device difficult to use [None]
  - Device difficult to use [None]
  - Device delivery system issue [None]
  - Injection site bruising [None]
  - Product complaint [None]

NARRATIVE: CASE EVENT DATE: 20210610
